FAERS Safety Report 9836656 (Version 1)
Quarter: 2013Q4

REPORT INFORMATION
  Report Type: Spontaneous
  Country: US (occurrence: None)
  Receive Date: 20131120
  Receipt Date: 20131120
  Transmission Date: 20140711
  Serious: Yes (Other)
  Sender: FDA-Public Use
  Company Number: 1000049291

PATIENT
  Age: 54 Year
  Sex: Male

DRUGS (3)
  1. VIIBRYD [Suspect]
     Indication: ANXIETY
     Route: 048
     Dates: start: 201308, end: 201308
  2. VIIBRYD [Suspect]
     Indication: ANXIETY
     Route: 048
     Dates: start: 201308, end: 201309
  3. XANAX (ALPRAZOLAM) [Concomitant]

REACTIONS (5)
  - Headache [None]
  - Diarrhoea [None]
  - Abdominal pain upper [None]
  - Off label use [None]
  - Agitation [None]
